FAERS Safety Report 5599488-2 (Version None)
Quarter: 2008Q1

REPORT INFORMATION
  Report Type: 
  Country: None (occurrence: None)
  Receive Date: 20080123
  Receipt Date: 20080114
  Transmission Date: 20080703
  Serious: Yes (Hospitalization)
  Sender: FDA-Public Use
  Company Number: FR-WYE-G00880408

PATIENT
  Sex: Male
  Weight: 16.2 kg

DRUGS (1)
  1. ADVIL LIQUI-GELS [Suspect]
     Dosage: ONE DOSE FORM
     Route: 048
     Dates: start: 20071120, end: 20071121

REACTIONS (2)
  - NASOPHARYNGITIS [None]
  - PHARYNGEAL ABSCESS [None]
